FAERS Safety Report 8240325-5 (Version None)
Quarter: 2012Q1

REPORT INFORMATION
  Report Type: 
  Country: None (occurrence: None)
  Receive Date: 20120328
  Receipt Date: 20120328
  Transmission Date: 20120608
  Serious: Yes (Other)
  Sender: FDA-Public Use
  Company Number: None

PATIENT
  Age: 49 Year
  Sex: Female
  Weight: 73.481 kg

DRUGS (1)
  1. CHORIONIC GONADOTROPIN [Suspect]
     Indication: WEIGHT CONTROL
     Dosage: 12 TO 14 DROPS UNDER TONGUE
     Route: 048
     Dates: start: 20120120, end: 20120130

REACTIONS (6)
  - GINGIVAL DISCOLOURATION [None]
  - GINGIVAL DISORDER [None]
  - CHAPPED LIPS [None]
  - TONGUE DISORDER [None]
  - OEDEMA MOUTH [None]
  - LIP SWELLING [None]
